FAERS Safety Report 21700755 (Version 1)
Quarter: 2022Q4

REPORT INFORMATION
  Report Type: Spontaneous
  Country: FR (occurrence: FR)
  Receive Date: 20221208
  Receipt Date: 20221208
  Transmission Date: 20230113
  Serious: Yes (Life-Threatening, Hospitalization, Other)
  Sender: FDA-Public Use
  Company Number: None

PATIENT
  Age: 51 Year
  Sex: Male

DRUGS (2)
  1. CYTARABINE [Suspect]
     Active Substance: CYTARABINE
     Indication: Ewing^s sarcoma
     Dosage: 200 MG/M2, SINGLE
     Route: 042
     Dates: start: 20221020, end: 20221020
  2. CERUBIDINE [Suspect]
     Active Substance: DAUNORUBICIN HYDROCHLORIDE
     Indication: Ewing^s sarcoma
     Dosage: 60 MG/M2, SINGLE
     Route: 042
     Dates: start: 20221020, end: 20221020

REACTIONS (2)
  - Agranulocytosis [Not Recovered/Not Resolved]
  - Lung disorder [Not Recovered/Not Resolved]

NARRATIVE: CASE EVENT DATE: 20221102
